FAERS Safety Report 9251546 (Version 1)
Quarter: 2013Q2

REPORT INFORMATION
  Report Type: Spontaneous
  Country: GB (occurrence: GB)
  Receive Date: 20130424
  Receipt Date: 20130424
  Transmission Date: 20140414
  Serious: Yes (Life-Threatening, Hospitalization)
  Sender: FDA-Public Use
  Company Number: GB-CELGENEUS-167-20785-13042167

PATIENT
  Age: 78 Year
  Sex: Female

DRUGS (12)
  1. THALIDOMIDE [Suspect]
     Indication: PLASMA CELL MYELOMA
     Route: 048
     Dates: start: 20121221, end: 20130401
  2. AMLODIPINE [Concomitant]
     Indication: HYPERTENSION
     Dosage: 5 MILLIGRAM
     Route: 048
  3. DALTEPARIN SODIUM [Concomitant]
     Indication: EMBOLISM VENOUS
     Dosage: 500 IU (INTERNATIONAL UNIT)
     Route: 058
     Dates: start: 20121108
  4. DEXAMETHASONE [Concomitant]
     Indication: PLASMA CELL MYELOMA
     Dosage: 2 MILLIGRAM
     Route: 065
     Dates: start: 20121221, end: 20130401
  5. FUROSEMIDE [Concomitant]
     Indication: PRODUCT USED FOR UNKNOWN INDICATION
     Dosage: 40 MILLIGRAM
     Route: 048
  6. LARBEX [Concomitant]
     Indication: HYPERTENSION
     Dosage: 4 MILLIGRAM
     Route: 048
  7. LOSARTAN [Concomitant]
     Indication: HYPERTENSION
     Dosage: 50 MILLIGRAM
     Route: 048
     Dates: end: 20130401
  8. OMEPRAZOLE [Concomitant]
     Indication: ULCER HAEMORRHAGE
     Route: 048
     Dates: start: 20130311
  9. OMEPRAZOLE [Concomitant]
     Dosage: 40 MILLIGRAM
     Route: 048
  10. SPIRONOLACTONE [Concomitant]
     Indication: PRODUCT USED FOR UNKNOWN INDICATION
     Dosage: 25 MILLIGRAM
     Route: 048
     Dates: end: 20130401
  11. ZOMETA [Concomitant]
     Indication: HYPERCALCAEMIA
     Route: 067
     Dates: start: 201212
  12. ZOMETA [Concomitant]
     Dosage: .1071 MILLIGRAM
     Route: 041
     Dates: start: 20130320, end: 20130320

REACTIONS (5)
  - Hyperkalaemia [Recovered/Resolved]
  - Anuria [Unknown]
  - Fluid overload [Unknown]
  - Blood creatinine increased [Unknown]
  - Dyspnoea [Unknown]
